FAERS Safety Report 17395239 (Version 1)
Quarter: 2020Q1

REPORT INFORMATION
  Report Type: Spontaneous
  Country: US (occurrence: US)
  Receive Date: 20200206
  Receipt Date: 20200206
  Transmission Date: 20200409
  Serious: Yes (Hospitalization)
  Sender: FDA-Public Use
  Company Number: None

PATIENT
  Age: 60 Year
  Sex: Female

DRUGS (21)
  1. TRAMADOL. [Concomitant]
     Active Substance: TRAMADOL
  2. PREDNISONE. [Concomitant]
     Active Substance: PREDNISONE
  3. OMEPRAZOLE. [Concomitant]
     Active Substance: OMEPRAZOLE
  4. METHOTREXATE. [Concomitant]
     Active Substance: METHOTREXATE
  5. OMEPRAZOLE. [Concomitant]
     Active Substance: OMEPRAZOLE
  6. REQUIP [Concomitant]
     Active Substance: ROPINIROLE HYDROCHLORIDE
  7. HYDROCODONE BITARTRATE AND ACETAMINOPHEN [Concomitant]
     Active Substance: ACETAMINOPHEN\HYDROCODONE BITARTRATE
  8. DULOXETINE. [Concomitant]
     Active Substance: DULOXETINE
  9. TOVIAZ [Concomitant]
     Active Substance: FESOTERODINE FUMARATE
  10. MONTELUKAST [Concomitant]
     Active Substance: MONTELUKAST SODIUM
  11. ELIQUIS [Concomitant]
     Active Substance: APIXABAN
  12. CIPRO [Concomitant]
     Active Substance: CIPROFLOXACIN HYDROCHLORIDE
  13. FUROSEMIDE. [Concomitant]
     Active Substance: FUROSEMIDE
  14. DILTIAZEM. [Concomitant]
     Active Substance: DILTIAZEM
  15. GABAPENTIN. [Concomitant]
     Active Substance: GABAPENTIN
  16. OXAPROZIN. [Concomitant]
     Active Substance: OXAPROZIN
  17. AMITRIPYLINE [Concomitant]
  18. LEUCOVORIN. [Concomitant]
     Active Substance: LEUCOVORIN
  19. CIMZIA [Suspect]
     Active Substance: CERTOLIZUMAB PEGOL
     Indication: SPONDYLITIS
     Route: 058
     Dates: start: 20191211
  20. ALENDRONATE [Concomitant]
     Active Substance: ALENDRONATE SODIUM
  21. IOSARTAN [Concomitant]

REACTIONS (1)
  - Knee operation [None]
